FAERS Safety Report 12398769 (Version 1)
Quarter: 2016Q2

REPORT INFORMATION
  Report Type: Spontaneous
  Country: TW (occurrence: TW)
  Receive Date: 20160524
  Receipt Date: 20160524
  Transmission Date: 20160815
  Serious: Yes (Other)
  Sender: FDA-Public Use
  Company Number: TW-BAYER-2016-091859

PATIENT
  Age: 50 Year
  Sex: Female

DRUGS (1)
  1. MIRENA [Suspect]
     Active Substance: LEVONORGESTREL
     Indication: MENORRHAGIA
     Dosage: 20 MCG/24HR, CONT
     Route: 015
     Dates: start: 20160511

REACTIONS (6)
  - Menorrhagia [None]
  - Breast pain [None]
  - Post procedural haemorrhage [None]
  - Anaemia [None]
  - Dry skin [None]
  - Tachycardia [None]

NARRATIVE: CASE EVENT DATE: 201605
